FAERS Safety Report 10263510 (Version 2)
Quarter: 2014Q3

REPORT INFORMATION
  Report Type: Report from Study
  Country: US (occurrence: US)
  Receive Date: 20140626
  Receipt Date: 20140703
  Transmission Date: 20150326
  Serious: Yes (Death, Hospitalization)
  Sender: FDA-Public Use
  Company Number: US-ACTELION-A-NJ2014-101046

PATIENT
  Age: 63 Year
  Sex: Female

DRUGS (2)
  1. VENTAVIS [Suspect]
     Active Substance: ILOPROST
     Indication: PULMONARY ARTERIAL HYPERTENSION
     Dosage: 5 MCG, 6-9X/DAY
     Route: 055
     Dates: start: 20140408
  2. REVATIO [Concomitant]
     Active Substance: SILDENAFIL CITRATE

REACTIONS (7)
  - Renal impairment [Unknown]
  - Blood potassium increased [Unknown]
  - Cardio-respiratory arrest [Fatal]
  - Liver function test abnormal [Unknown]
  - Asthenia [Unknown]
  - No therapeutic response [Unknown]
  - Anaemia [Unknown]

NARRATIVE: CASE EVENT DATE: 20140602
